FAERS Safety Report 11468327 (Version 2)
Quarter: 2015Q3

REPORT INFORMATION
  Report Type: Spontaneous
  Country: US (occurrence: US)
  Receive Date: 20150903
  Receipt Date: 20150903
  Transmission Date: 20151125
  Serious: No
  Sender: FDA-Public Use
  Company Number: US-ELI_LILLY_AND_COMPANY-US201108004081

PATIENT
  Age: 88 Year
  Sex: Female
  Weight: 48.53 kg

DRUGS (3)
  1. CYMBALTA [Suspect]
     Active Substance: DULOXETINE HYDROCHLORIDE
     Dosage: 30 MG, UNK
  2. PLAVIX [Concomitant]
     Active Substance: CLOPIDOGREL BISULFATE
  3. CYMBALTA [Suspect]
     Active Substance: DULOXETINE HYDROCHLORIDE
     Dosage: 60 MG, QD

REACTIONS (5)
  - Adverse event [Unknown]
  - Urinary tract infection [Unknown]
  - Memory impairment [Unknown]
  - Vertigo [Unknown]
  - Asthenia [Not Recovered/Not Resolved]
